FAERS Safety Report 7231451-8 (Version None)
Quarter: 2011Q1

REPORT INFORMATION
  Report Type: 
  Country: None (occurrence: None)
  Receive Date: 20110118
  Receipt Date: 20110113
  Transmission Date: 20110831
  Serious: Yes (Death, Life-Threatening, Disabling, Other)
  Sender: FDA-Public Use
  Company Number: JP-PFIZER INC-2010061298

PATIENT
  Age: 80 Year
  Sex: Male
  Weight: 36.6 kg

DRUGS (12)
  1. RIFABUTIN [Suspect]
     Indication: MYCOBACTERIUM AVIUM COMPLEX INFECTION
     Dosage: 150 MG, 1X/DAY
     Route: 048
     Dates: start: 20091021, end: 20100107
  2. CRAVIT [Concomitant]
     Indication: MYCOBACTERIUM AVIUM COMPLEX INFECTION
     Dosage: 500 MG, 1X/DAY
     Route: 048
     Dates: start: 20091111, end: 20100107
  3. INOVAN [Concomitant]
     Dosage: 1.5 ML/HOUR
     Route: 042
     Dates: start: 20100101
  4. CLARITHROMYCIN [Concomitant]
     Indication: MYCOBACTERIUM AVIUM COMPLEX INFECTION
     Dosage: 600 MG, 1X/DAY
     Route: 048
     Dates: end: 20100107
  5. STREPTOMYCIN [Concomitant]
     Indication: MYCOBACTERIUM AVIUM COMPLEX INFECTION
     Dosage: 500 MG, 1X/DAY
     Route: 030
     Dates: start: 20091203, end: 20091227
  6. ESANBUTOL [Concomitant]
     Indication: MYCOBACTERIUM AVIUM COMPLEX INFECTION
     Dosage: 750 MG, 1X/DAY
     Route: 048
     Dates: end: 20091202
  7. FUNGIZONE [Concomitant]
     Dosage: 30 ML, 3X/DAY
     Dates: start: 20091214, end: 20100112
  8. FERROUS CITRATE SODIUM [Concomitant]
     Dosage: 50 MG, 1X/DAY
     Route: 048
     Dates: end: 20100107
  9. CODEINE PHOSPHATE [Concomitant]
     Dosage: 6 ML, 3X/DAY
     Route: 048
     Dates: end: 20100107
  10. FAMOTIDINE [Concomitant]
     Dosage: 20 MG, 2X/DAY
     Route: 048
     Dates: end: 20100107
  11. TAMSULOSIN HYDROCHLORIDE [Concomitant]
     Dosage: 0.2 MG, 1X/DAY
     Route: 048
  12. REBAMIPIDE [Concomitant]
     Dosage: 300 MG, 3X/DAY
     Route: 048
     Dates: end: 20100107

REACTIONS (4)
  - PLATELET COUNT DECREASED [None]
  - RENAL IMPAIRMENT [None]
  - RIGHT VENTRICULAR FAILURE [None]
  - PNEUMONIA [None]
